FAERS Safety Report 4899992-6 (Version None)
Quarter: 2006Q1

REPORT INFORMATION
  Report Type: 
  Country: None (occurrence: None)
  Receive Date: 20060201
  Receipt Date: 20060119
  Transmission Date: 20060701
  Serious: Yes (Hospitalization, Other)
  Sender: FDA-Public Use
  Company Number: DEU-2005-0001851

PATIENT
  Age: 49 Year
  Sex: Male

DRUGS (13)
  1. OXYCODONE HCL [Suspect]
     Indication: PAIN
     Dosage: 200 MG, DAILY, ORAL
     Route: 048
     Dates: start: 20050701
  2. DURAGESIC [Concomitant]
  3. DIAZEPAM [Concomitant]
  4. BENZODIAZEPINE DERIVATIVES [Concomitant]
  5. AMARYL [Concomitant]
  6. LISINOPRIL [Concomitant]
  7. DONEURIN (DOXEPIN HYDROCHLORIDE) [Concomitant]
  8. TIAPRIDEX (TIAPRIDE HYDROCHLORIDE) [Concomitant]
  9. METFORMIN HYDROCHLORIDE [Concomitant]
  10. ACETAMINOPHEN [Concomitant]
  11. AMLOPIN (AMLODIPINE BESILATE) [Concomitant]
  12. METOPROLOL SUCCINATE [Concomitant]
  13. HAEMITON            (CLONIDINE HYDROCHLORIDE) [Concomitant]

REACTIONS (12)
  - CONDITION AGGRAVATED [None]
  - DEPRESSION [None]
  - DRUG ABUSER [None]
  - DRUG TOLERANCE INCREASED [None]
  - DRUG TOXICITY [None]
  - DRUG WITHDRAWAL SYNDROME [None]
  - HYPERTENSION [None]
  - NIGHTMARE [None]
  - PANIC DISORDER [None]
  - POLYSUBSTANCE DEPENDENCE [None]
  - SUICIDAL IDEATION [None]
  - TACHYCARDIA [None]
